FAERS Safety Report 6858372-4 (Version None)
Quarter: 2010Q3

REPORT INFORMATION
  Report Type: 
  Country: None (occurrence: None)
  Receive Date: 20100719
  Receipt Date: 20080207
  Transmission Date: 20110219
  Serious: No
  Sender: FDA-Public Use
  Company Number: US-PFIZER INC-2008013020

PATIENT
  Sex: Female
  Weight: 70.5 kg

DRUGS (7)
  1. CHANTIX [Suspect]
     Indication: SMOKING CESSATION THERAPY
     Dates: start: 20070101
  2. ANTIHYPERTENSIVES [Concomitant]
     Indication: HYPERTENSION
  3. ALL OTHER THERAPEUTIC PRODUCTS [Concomitant]
     Indication: GASTROOESOPHAGEAL REFLUX DISEASE
  4. ANTI-ASTHMATICS [Concomitant]
     Indication: ASTHMA
  5. DRUG, UNSPECIFIED [Concomitant]
     Indication: EMPHYSEMA
  6. ACETYLSALICYLIC ACID [Concomitant]
  7. FLONASE [Concomitant]

REACTIONS (1)
  - NAUSEA [None]
